FAERS Safety Report 10027212 (Version 5)
Quarter: 2014Q2

REPORT INFORMATION
  Report Type: Spontaneous
  Country: JP (occurrence: JP)
  Receive Date: 20140321
  Receipt Date: 20140619
  Transmission Date: 20141212
  Serious: Yes (Other)
  Sender: FDA-Public Use
  Company Number: JP-BRISTOL-MYERS SQUIBB COMPANY-20542437

PATIENT
  Age: 73 Year
  Sex: Male

DRUGS (10)
  1. ELIQUIS [Suspect]
     Indication: ATRIAL FIBRILLATION
     Route: 048
     Dates: start: 20140304, end: 20140311
  2. NEXIUM [Suspect]
     Indication: PROPHYLAXIS
     Route: 048
  3. PLAVIX [Suspect]
     Route: 048
     Dates: end: 20140304
  4. AMARYL [Concomitant]
     Indication: DIABETES MELLITUS
     Route: 048
  5. BAYASPIRIN [Concomitant]
     Route: 048
  6. BASEN [Concomitant]
     Route: 048
  7. METHYCOBAL [Concomitant]
     Dates: end: 20140228
  8. ADENOSINE TRIPHOSPHATE DISODIUM [Concomitant]
     Dates: end: 20140228
  9. NICOTINAMIDE [Concomitant]
     Route: 048
     Dates: end: 20140314
  10. ACTOS [Concomitant]
     Dates: end: 20140324

REACTIONS (3)
  - Gallbladder cancer [Unknown]
  - Liver function test abnormal [Recovering/Resolving]
  - Abdominal distension [Recovering/Resolving]
